FAERS Safety Report 7795328-1 (Version None)
Quarter: 2011Q4

REPORT INFORMATION
  Report Type: 
  Country: None (occurrence: None)
  Receive Date: 20111004
  Receipt Date: 20110927
  Transmission Date: 20120403
  Serious: Yes (Other)
  Sender: FDA-Public Use
  Company Number: PHHY2011JP82244

PATIENT
  Age: 74 Year
  Sex: Male

DRUGS (3)
  1. ZOMETA [Suspect]
     Indication: METASTASES TO BONE
     Dosage: 4 MG, EVERY 4 WEEKS
  2. BICALUTAMIDE [Concomitant]
     Indication: METASTASES TO BONE
  3. LEUPROLIDE ACETATE [Concomitant]
     Indication: METASTASES TO BONE

REACTIONS (5)
  - RENAL TUBULAR DISORDER [None]
  - BLOOD CREATININE INCREASED [None]
  - RENAL INJURY [None]
  - BLOOD POTASSIUM DECREASED [None]
  - BLOOD UREA INCREASED [None]
